FAERS Safety Report 7160508-5 (Version None)
Quarter: 2010Q4

REPORT INFORMATION
  Report Type: 
  Country: None (occurrence: None)
  Receive Date: 20101214
  Receipt Date: 20101103
  Transmission Date: 20110411
  Serious: No
  Sender: FDA-Public Use
  Company Number: US-AMGEN-KDL378997

PATIENT

DRUGS (3)
  1. ENBREL [Suspect]
     Indication: RHEUMATOID ARTHRITIS
     Dosage: 50 MG, QWK
     Route: 058
     Dates: start: 20011001
  2. ENBREL [Suspect]
     Dates: start: 20011001
  3. ARAVA [Concomitant]
     Dosage: 1 MG, QWK
     Dates: start: 19950101

REACTIONS (5)
  - BLOOD PRESSURE INCREASED [None]
  - BRONCHITIS [None]
  - EPISTAXIS [None]
  - RHEUMATOID ARTHRITIS [None]
  - SINUS HEADACHE [None]
